FAERS Safety Report 14573546 (Version 2)
Quarter: 2018Q1

REPORT INFORMATION
  Report Type: Report from Study
  Country: KR (occurrence: KR)
  Receive Date: 20180226
  Receipt Date: 20180306
  Transmission Date: 20180509
  Serious: Yes (Death, Hospitalization)
  Sender: FDA-Public Use
  Company Number: KR-PFIZER INC-2017226029

PATIENT
  Age: 59 Year
  Sex: Male
  Weight: 79 kg

DRUGS (11)
  1. CARBOPLATIN. [Suspect]
     Active Substance: CARBOPLATIN
     Dosage: 750 MG, EVERY 3 WEEKS
     Route: 042
  2. CARBOPLATIN. [Suspect]
     Active Substance: CARBOPLATIN
     Dosage: 750 MG, EVERY 3 WEEKS
     Route: 042
  3. AVELUMAB [Suspect]
     Active Substance: AVELUMAB
     Indication: NON-SMALL CELL LUNG CANCER
     Dosage: 792 MG, CYCLIC (EVERY TWO WEEKS)
     Route: 042
     Dates: start: 20170330
  4. CARBOPLATIN. [Suspect]
     Active Substance: CARBOPLATIN
     Indication: NON-SMALL CELL LUNG CANCER
     Dosage: 750 MG, EVERY 3 WEEKS
     Route: 042
     Dates: start: 20161230
  5. AVELUMAB [Suspect]
     Active Substance: AVELUMAB
     Dosage: 792 MG, CYCLIC(EVERY TWO WEEKS)
     Route: 042
     Dates: end: 20170427
  6. AVELUMAB [Suspect]
     Active Substance: AVELUMAB
     Dosage: 792 MG, CYCLIC(EVERY TWO WEEKS)
     Route: 042
  7. CARBOPLATIN. [Suspect]
     Active Substance: CARBOPLATIN
     Dosage: 750 MG, EVERY 3 WEEKS
     Route: 042
  8. PEMETREXED. [Suspect]
     Active Substance: PEMETREXED
     Indication: NON-SMALL CELL LUNG CANCER
     Dosage: 980 MG, EVERY 3 WEEKS
     Route: 042
     Dates: start: 20161230
  9. PEMETREXED. [Suspect]
     Active Substance: PEMETREXED
     Dosage: 980 MG, EVERY 3 WEEKS
     Route: 042
     Dates: end: 20170228
  10. AVELUMAB [Suspect]
     Active Substance: AVELUMAB
     Dosage: 792 MG, CYCLIC(EVERY TWO WEEKS)
     Route: 042
  11. CARBOPLATIN. [Suspect]
     Active Substance: CARBOPLATIN
     Dosage: 750 MG, EVERY 3 WEEKS
     Route: 042
     Dates: end: 20170228

REACTIONS (2)
  - Neoplasm progression [Fatal]
  - Pneumonia [Not Recovered/Not Resolved]

NARRATIVE: CASE EVENT DATE: 20170509
